FAERS Safety Report 15343772 (Version 3)
Quarter: 2018Q4

REPORT INFORMATION
  Report Type: Report from Study
  Country: US (occurrence: US)
  Receive Date: 20180903
  Receipt Date: 20181025
  Transmission Date: 20190204
  Serious: Yes (Hospitalization, Other)
  Sender: FDA-Public Use
  Company Number: US-BRISTOL-MYERS SQUIBB COMPANY-BMS-2018-080465

PATIENT
  Sex: Male

DRUGS (2)
  1. IPILIMUMAB [Suspect]
     Active Substance: IPILIMUMAB
     Indication: MALIGNANT MELANOMA
     Dosage: UNK, Q2WK
     Route: 042
  2. NIVOLUMAB [Suspect]
     Active Substance: NIVOLUMAB
     Indication: MALIGNANT MELANOMA
     Dosage: UNK, Q2WK
     Route: 042

REACTIONS (19)
  - Balance disorder [Unknown]
  - Adverse event [Unknown]
  - Pneumonia [Unknown]
  - Weight decreased [Unknown]
  - Visual impairment [Unknown]
  - Dry mouth [Unknown]
  - Joint swelling [Unknown]
  - Burning sensation [Unknown]
  - Dizziness [Unknown]
  - Alopecia [Unknown]
  - Auditory disorder [Unknown]
  - Weight increased [Unknown]
  - Nail disorder [Unknown]
  - Asthenia [Unknown]
  - Muscle strain [Unknown]
  - Oral mucosal blistering [Recovered/Resolved]
  - Pericardial effusion [Unknown]
  - Thyroid disorder [Unknown]
  - Rash [Unknown]
